FAERS Safety Report 6212153-3 (Version None)
Quarter: 2009Q2

REPORT INFORMATION
  Report Type: 
  Country: None (occurrence: None)
  Receive Date: 20090602
  Receipt Date: 20090522
  Transmission Date: 20091009
  Serious: Yes (Other)
  Sender: FDA-Public Use
  Company Number: US-WYE-H09044809

PATIENT
  Age: 32 Year
  Sex: Female
  Weight: 52.21 kg

DRUGS (2)
  1. PRISTIQ [Suspect]
     Indication: MAJOR DEPRESSION
     Route: 048
     Dates: start: 20090301, end: 20090401
  2. XANAX [Concomitant]
     Indication: ANXIETY
     Dosage: UNSPECIFIED DOSE ,PRN
     Route: 048

REACTIONS (8)
  - ABASIA [None]
  - ANOREXIA [None]
  - ANXIETY [None]
  - APHASIA [None]
  - COMMUNICATION DISORDER [None]
  - CONFUSIONAL STATE [None]
  - DYSARTHRIA [None]
  - UNEVALUABLE EVENT [None]
